FAERS Safety Report 16597483 (Version 8)
Quarter: 2023Q2

REPORT INFORMATION
  Report Type: Spontaneous
  Country: US (occurrence: US)
  Receive Date: 20190719
  Receipt Date: 20230626
  Transmission Date: 20230722
  Serious: Yes (Other)
  Sender: FDA-Public Use
  Company Number: US-GILEAD-2019-0418455

PATIENT
  Age: 52 Year
  Sex: Male

DRUGS (61)
  1. TRUVADA [Suspect]
     Active Substance: EMTRICITABINE\TENOFOVIR DISOPROXIL FUMARATE
     Indication: HIV infection
     Dosage: UNK
     Route: 048
     Dates: start: 2004, end: 2013
  2. TRUVADA [Suspect]
     Active Substance: EMTRICITABINE\TENOFOVIR DISOPROXIL FUMARATE
     Dosage: UNK
     Route: 048
     Dates: start: 2004, end: 20140113
  3. ATRIPLA [Suspect]
     Active Substance: EFAVIRENZ\EMTRICITABINE\TENOFOVIR DISOPROXIL FUMARATE
     Indication: HIV infection
     Dosage: UNK
     Route: 048
     Dates: start: 20081122, end: 20130725
  4. ATRIPLA [Suspect]
     Active Substance: EFAVIRENZ\EMTRICITABINE\TENOFOVIR DISOPROXIL FUMARATE
     Dosage: UNK
     Route: 048
     Dates: start: 20081121, end: 20130625
  5. STRIBILD [Suspect]
     Active Substance: COBICISTAT\ELVITEGRAVIR\EMTRICITABINE\TENOFOVIR DISOPROXIL FUMARATE
     Indication: HIV infection
     Dosage: UNK
     Route: 048
     Dates: start: 20130925, end: 20161214
  6. STRIBILD [Suspect]
     Active Substance: COBICISTAT\ELVITEGRAVIR\EMTRICITABINE\TENOFOVIR DISOPROXIL FUMARATE
     Dosage: UNK
     Route: 048
     Dates: start: 20130910, end: 20151212
  7. BIKTARVY [Concomitant]
     Active Substance: BICTEGRAVIR SODIUM\EMTRICITABINE\TENOFOVIR ALAFENAMIDE FUMARATE
  8. GENVOYA [Concomitant]
     Active Substance: COBICISTAT\ELVITEGRAVIR\EMTRICITABINE\TENOFOVIR ALAFENAMIDE FUMARATE
  9. VITAMIN D3 [Concomitant]
     Active Substance: CHOLECALCIFEROL
  10. TYMLOS [Concomitant]
     Active Substance: ABALOPARATIDE
  11. PERCOCET [Concomitant]
     Active Substance: ACETAMINOPHEN\OXYCODONE HYDROCHLORIDE
  12. CELECOXIB [Concomitant]
     Active Substance: CELECOXIB
  13. TUMS [Concomitant]
     Active Substance: CALCIUM CARBONATE
  14. PIROXICAM [Concomitant]
     Active Substance: PIROXICAM
  15. COMPAZINE [Concomitant]
     Active Substance: PROCHLORPERAZINE MALEATE
  16. LOSARTAN [Concomitant]
     Active Substance: LOSARTAN
  17. AMLODIPINE [Concomitant]
     Active Substance: AMLODIPINE BESYLATE
  18. ASPIRIN [Concomitant]
     Active Substance: ASPIRIN
  19. BUDESONIDE [Concomitant]
     Active Substance: BUDESONIDE
  20. ZYRTEC [Concomitant]
     Active Substance: CETIRIZINE HYDROCHLORIDE
  21. LINZESS [Concomitant]
     Active Substance: LINACLOTIDE
  22. COENZYME Q10 [Concomitant]
     Active Substance: DIETARY SUPPLEMENT\UBIDECARENONE
  23. PRAVASTATIN [Concomitant]
     Active Substance: PRAVASTATIN
  24. LEVOFLOXACIN [Concomitant]
     Active Substance: LEVOFLOXACIN
  25. PAROXETINE [Concomitant]
     Active Substance: PAROXETINE
  26. HYDROCORTISONE [Concomitant]
     Active Substance: HYDROCORTISONE
  27. ACYCLOVIR [Concomitant]
     Active Substance: ACYCLOVIR
  28. ACETAMINOPHEN [Concomitant]
     Active Substance: ACETAMINOPHEN
  29. AMOXICILLIN [Concomitant]
     Active Substance: AMOXICILLIN
  30. BACTRIM [Concomitant]
     Active Substance: SULFAMETHOXAZOLE\TRIMETHOPRIM
  31. FLEET [GLYCEROL] [Concomitant]
  32. METHYLPREDNISOLONE [Concomitant]
     Active Substance: METHYLPREDNISOLONE
  33. PREDNISONE [Concomitant]
     Active Substance: PREDNISONE
  34. TETRACYCLINE [Concomitant]
     Active Substance: TETRACYCLINE
  35. EPIVIR [Concomitant]
     Active Substance: LAMIVUDINE
  36. NORVIR [Concomitant]
     Active Substance: RITONAVIR
  37. REYATAZ [Concomitant]
     Active Substance: ATAZANAVIR SULFATE
  38. SUSTIVA [Concomitant]
     Active Substance: EFAVIRENZ
  39. CLINDAMYCIN [Concomitant]
     Active Substance: CLINDAMYCIN
  40. NICOTINE TRANSDERMAL SYSTEM [Concomitant]
     Active Substance: NICOTINE
  41. FEXOFENADINE [Concomitant]
     Active Substance: FEXOFENADINE HYDROCHLORIDE
  42. COMPAZINE [Concomitant]
     Active Substance: PROCHLORPERAZINE MALEATE
  43. PROCHLORPERAZINE [Concomitant]
     Active Substance: PROCHLORPERAZINE
  44. ONDANSETRON [Concomitant]
     Active Substance: ONDANSETRON
  45. HYDROXYZINE HYDROCHLORIDE [Concomitant]
     Active Substance: HYDROXYZINE HYDROCHLORIDE
  46. CETIRIZINE [Concomitant]
     Active Substance: CETIRIZINE HYDROCHLORIDE
  47. DICYCLOMINE [Concomitant]
     Active Substance: DICYCLOMINE HYDROCHLORIDE
  48. VALTREX [Concomitant]
     Active Substance: VALACYCLOVIR HYDROCHLORIDE
  49. TERBINAFINE [Concomitant]
     Active Substance: TERBINAFINE
  50. AZITHROMYCIN [Concomitant]
     Active Substance: AZITHROMYCIN
  51. FLUCONAZOLE [Concomitant]
     Active Substance: FLUCONAZOLE
  52. NYSTATIN [Concomitant]
     Active Substance: NYSTATIN
  53. VITAMIN B12 [Concomitant]
     Active Substance: CYANOCOBALAMIN
  54. BENADRYL [Concomitant]
     Active Substance: DIPHENHYDRAMINE HYDROCHLORIDE
  55. ALBUTEROL SULFATE [Concomitant]
     Active Substance: ALBUTEROL SULFATE
  56. GAVILYTE G [Concomitant]
     Active Substance: POLYETHYLENE GLYCOL 3350\POTASSIUM CHLORIDE\SODIUM BICARBONATE\SODIUM CHLORIDE\SODIUM SULFATE
  57. NORTRIPTYLINE [Concomitant]
     Active Substance: NORTRIPTYLINE
  58. CEFUROXIME [Concomitant]
     Active Substance: CEFUROXIME
  59. VITAMIN E [Concomitant]
     Active Substance: .ALPHA.-TOCOPHEROL
  60. BISACODYL [Concomitant]
     Active Substance: BISACODYL
  61. AZELASTINE [Concomitant]
     Active Substance: AZELASTINE

REACTIONS (27)
  - Pathological fracture [Unknown]
  - Multiple fractures [Not Recovered/Not Resolved]
  - Osteonecrosis [Not Recovered/Not Resolved]
  - Osteoporotic fracture [Unknown]
  - Hip fracture [Unknown]
  - Drug ineffective [Unknown]
  - Intervertebral disc operation [Not Recovered/Not Resolved]
  - Cervical spinal stenosis [Unknown]
  - Bone density decreased [Not Recovered/Not Resolved]
  - Bone loss [Not Recovered/Not Resolved]
  - Arthritis [Unknown]
  - Spinal stenosis [Unknown]
  - Osteopenia [Not Recovered/Not Resolved]
  - Spinal column injury [Unknown]
  - Pain [Not Recovered/Not Resolved]
  - Emotional distress [Not Recovered/Not Resolved]
  - Anxiety [Not Recovered/Not Resolved]
  - Anhedonia [Not Recovered/Not Resolved]
  - Economic problem [Not Recovered/Not Resolved]
  - Back pain [Unknown]
  - Intervertebral disc degeneration [Unknown]
  - Mobility decreased [Unknown]
  - Cervical radiculopathy [Unknown]
  - Spinal osteoarthritis [Unknown]
  - Sacroiliac joint dysfunction [Unknown]
  - Depression [Not Recovered/Not Resolved]
  - Tooth fracture [Not Recovered/Not Resolved]

NARRATIVE: CASE EVENT DATE: 20080101
